FAERS Safety Report 24606197 (Version 1)
Quarter: 2024Q4

REPORT INFORMATION
  Report Type: Spontaneous
  Country: US (occurrence: US)
  Receive Date: 20241112
  Receipt Date: 20241112
  Transmission Date: 20250115
  Serious: No
  Sender: ABBVIE
  Company Number: US-ABBVIE-5993689

PATIENT

DRUGS (1)
  1. DALVANCE [Suspect]
     Active Substance: DALBAVANCIN
     Indication: Product used for unknown indication
     Dosage: FREQUENCY TEXT: 500MG PWD?START DATE TEXT: UNKNOWN?STOP DATE TEXT: UNKNOWN
     Route: 042

REACTIONS (1)
  - Adverse drug reaction [Unknown]
